FAERS Safety Report 22213589 (Version 1)
Quarter: 2023Q2

REPORT INFORMATION
  Report Type: Spontaneous
  Country: LU (occurrence: LU)
  Receive Date: 20230414
  Receipt Date: 20230414
  Transmission Date: 20230721
  Serious: Yes (Other)
  Sender: FDA-Public Use
  Company Number: LU-ELI_LILLY_AND_COMPANY-LU202304002804

PATIENT
  Age: 78 Year
  Sex: Male

DRUGS (1)
  1. HUMULIN 70/30 [Suspect]
     Active Substance: INSULIN HUMAN
     Indication: Diabetes mellitus
     Dosage: UNK, UNK
     Route: 065
     Dates: start: 2013

REACTIONS (2)
  - Dementia Alzheimer^s type [Unknown]
  - Incorrect dose administered [Unknown]
